FAERS Safety Report 7264982-5 (Version None)
Quarter: 2011Q1

REPORT INFORMATION
  Report Type: 
  Country: None (occurrence: None)
  Receive Date: 20110131
  Receipt Date: 20110114
  Transmission Date: 20110831
  Serious: Yes (Other)
  Sender: FDA-Public Use
  Company Number: US-BAYER-2011-005417

PATIENT
  Sex: Female

DRUGS (3)
  1. INTERFERON BETA-1B [Suspect]
     Dosage: UNK
     Dates: end: 20070910
  2. INTERFERON BETA-1B [Suspect]
     Dosage: UNK
     Dates: start: 20090102, end: 20090612
  3. INTERFERON BETA-1B [Suspect]
     Indication: MULTIPLE SCLEROSIS
     Dosage: UNK
     Dates: start: 20041110

REACTIONS (1)
  - HEADACHE [None]
